FAERS Safety Report 18234738 (Version 2)
Quarter: 2020Q3

REPORT INFORMATION
  Report Type: Spontaneous
  Country: US (occurrence: US)
  Receive Date: 20200904
  Receipt Date: 20200904
  Transmission Date: 20201103
  Serious: No
  Sender: FDA-Public Use
  Company Number: US-BAUSCH-BL-2020-024804

PATIENT
  Age: 44 Year
  Sex: Male

DRUGS (1)
  1. ARESTIN [Suspect]
     Active Substance: MINOCYCLINE HYDROCHLORIDE
     Indication: DENTAL CARE
     Dosage: 2 CARTRIDGES
     Route: 065
     Dates: start: 20200824

REACTIONS (4)
  - Headache [Unknown]
  - Dizziness [Unknown]
  - Blood pressure increased [Unknown]
  - Ear disorder [Unknown]

NARRATIVE: CASE EVENT DATE: 20200825
